FAERS Safety Report 18697245 (Version 1)
Quarter: 2021Q1

REPORT INFORMATION
  Report Type: Spontaneous
  Country: CH (occurrence: CH)
  Receive Date: 20210104
  Receipt Date: 20210104
  Transmission Date: 20210419
  Serious: Yes (Hospitalization)
  Sender: FDA-Public Use
  Company Number: CH-009507513-2012CHE013471

PATIENT
  Sex: Male

DRUGS (35)
  1. PEMETREXED DISODIUM [Suspect]
     Active Substance: PEMETREXED DISODIUM
     Dosage: UNK
     Dates: start: 20201103, end: 202011
  2. IPRAMOL (ALBUTEROL SULFATE (+) IPRATROPIUM BROMIDE) [Concomitant]
     Dosage: AS NECESSARY
  3. PEMBROLIZUMAB. [Suspect]
     Active Substance: PEMBROLIZUMAB
     Dosage: UNK
     Dates: start: 20200901, end: 202009
  4. JARDIANCE MET [Concomitant]
     Active Substance: EMPAGLIFLOZIN\METFORMIN HYDROCHLORIDE
  5. EZETROL [Concomitant]
     Active Substance: EZETIMIBE
  6. NOVORAPID [Concomitant]
     Active Substance: INSULIN ASPART
     Dosage: AS NECESSARY
  7. PEMBROLIZUMAB. [Suspect]
     Active Substance: PEMBROLIZUMAB
     Dosage: UNK
     Dates: start: 20200920, end: 202009
  8. ULTIBRO BREEZEHALER [Concomitant]
     Active Substance: GLYCOPYRRONIUM\INDACATEROL
  9. BELOC?ZOK [Concomitant]
     Active Substance: METOPROLOL SUCCINATE
  10. PEMBROLIZUMAB. [Suspect]
     Active Substance: PEMBROLIZUMAB
     Dosage: UNK
     Dates: start: 20201124, end: 202011
  11. DEXAMETHASONE PHOSPHATE [Suspect]
     Active Substance: DEXAMETHASONE PHOSPHATE
     Dosage: UNK
     Dates: start: 20201013, end: 20201014
  12. DEXAMETHASONE PHOSPHATE [Suspect]
     Active Substance: DEXAMETHASONE PHOSPHATE
     Dosage: UNK
     Dates: start: 20201103, end: 20201104
  13. DEXAMETHASONE PHOSPHATE [Suspect]
     Active Substance: DEXAMETHASONE PHOSPHATE
     Dosage: UNK
     Dates: start: 20201124, end: 20201125
  14. CARBOPLATIN. [Suspect]
     Active Substance: CARBOPLATIN
     Dosage: UNK
     Dates: start: 20200920, end: 202009
  15. PURSANA [Concomitant]
     Active Substance: FIG FRUIT OIL\SORBITOL
  16. CARBOPLATIN. [Suspect]
     Active Substance: CARBOPLATIN
     Dosage: UNK
     Dates: start: 20200901, end: 202009
  17. PEMETREXED DISODIUM [Suspect]
     Active Substance: PEMETREXED DISODIUM
     Dosage: UNK
     Dates: start: 20200901, end: 202009
  18. PEMETREXED DISODIUM [Suspect]
     Active Substance: PEMETREXED DISODIUM
     Dosage: UNK
     Dates: start: 20201124, end: 202011
  19. DIAMICRON [Concomitant]
     Active Substance: GLICLAZIDE
  20. CRESTOR [Concomitant]
     Active Substance: ROSUVASTATIN CALCIUM
  21. PEMBROLIZUMAB. [Suspect]
     Active Substance: PEMBROLIZUMAB
     Dosage: UNK
     Dates: start: 20201103, end: 202011
  22. DEXAMETHASONE PHOSPHATE [Suspect]
     Active Substance: DEXAMETHASONE PHOSPHATE
     Dosage: UNK
     Dates: start: 20200920, end: 20200921
  23. CARBOPLATIN. [Suspect]
     Active Substance: CARBOPLATIN
     Dosage: UNK
     Dates: start: 20201124, end: 202011
  24. PEMETREXED DISODIUM [Suspect]
     Active Substance: PEMETREXED DISODIUM
     Dosage: UNK
     Dates: start: 20200920, end: 202009
  25. DAFALGAN [Concomitant]
     Active Substance: ACETAMINOPHEN
     Dosage: AS NECESSARY
  26. LAXOBERON [Concomitant]
     Active Substance: SODIUM PICOSULFATE
     Dosage: AS NECESSARY
  27. VENLAFAXINE HYDROCHLORIDE. [Concomitant]
     Active Substance: VENLAFAXINE HYDROCHLORIDE
     Dates: start: 2011
  28. CARBOPLATIN. [Suspect]
     Active Substance: CARBOPLATIN
     Dosage: UNK
     Dates: start: 20201013, end: 202010
  29. PEMETREXED DISODIUM [Suspect]
     Active Substance: PEMETREXED DISODIUM
     Dosage: UNK
     Dates: start: 20201013, end: 202010
  30. SEROQUEL [Concomitant]
     Active Substance: QUETIAPINE FUMARATE
     Dates: start: 20201215
  31. XARELTO [Concomitant]
     Active Substance: RIVAROXABAN
  32. PEMBROLIZUMAB. [Suspect]
     Active Substance: PEMBROLIZUMAB
     Dosage: UNK
     Dates: start: 20201013, end: 202010
  33. DEXAMETHASONE PHOSPHATE [Suspect]
     Active Substance: DEXAMETHASONE PHOSPHATE
     Dosage: UNK
     Dates: start: 20200901, end: 20200902
  34. CARBOPLATIN. [Suspect]
     Active Substance: CARBOPLATIN
     Dosage: UNK
     Dates: start: 20201103, end: 202011
  35. ZOLPIDEM [Concomitant]
     Active Substance: ZOLPIDEM TARTRATE
     Dosage: AS NECESSARY

REACTIONS (1)
  - Psychotic disorder [Not Recovered/Not Resolved]

NARRATIVE: CASE EVENT DATE: 202009
